FAERS Safety Report 15992152 (Version 3)
Quarter: 2019Q1

REPORT INFORMATION
  Report Type: Spontaneous
  Country: US (occurrence: US)
  Receive Date: 20190221
  Receipt Date: 20190313
  Transmission Date: 20190418
  Serious: Yes (Other)
  Sender: FDA-Public Use
  Company Number: US-ASTRAZENECA-2018SF22554

PATIENT
  Age: 22064 Day
  Sex: Female

DRUGS (14)
  1. ASPIRIN. [Concomitant]
     Active Substance: ASPIRIN
  2. CLINDAMYCIN HYDROCHLORIDE. [Concomitant]
     Active Substance: CLINDAMYCIN HYDROCHLORIDE
  3. RELAFEN [Concomitant]
     Active Substance: NABUMETONE
  4. ZITHROMAX [Concomitant]
     Active Substance: AZITHROMYCIN DIHYDRATE
  5. ENOXAPARIN [Concomitant]
     Active Substance: ENOXAPARIN
  6. COLACE [Concomitant]
     Active Substance: DOCUSATE SODIUM
  7. LIDODERM [Concomitant]
     Active Substance: LIDOCAINE
  8. TYLENOL [Concomitant]
     Active Substance: ACETAMINOPHEN
  9. NORVASC [Concomitant]
     Active Substance: AMLODIPINE BESYLATE
  10. NEXIUM [Suspect]
     Active Substance: ESOMEPRAZOLE MAGNESIUM
     Route: 048
  11. XANAX [Concomitant]
     Active Substance: ALPRAZOLAM
  12. HYDROCHLOROTHIAZIDE. [Concomitant]
     Active Substance: HYDROCHLOROTHIAZIDE
  13. LEVAQUIN [Concomitant]
     Active Substance: LEVOFLOXACIN
  14. CIPROFLOXACIN. [Concomitant]
     Active Substance: CIPROFLOXACIN

REACTIONS (4)
  - Acute kidney injury [Unknown]
  - Chronic kidney disease [Unknown]
  - Renal injury [Unknown]
  - Renal failure [Unknown]

NARRATIVE: CASE EVENT DATE: 20130619
